FAERS Safety Report 6673224-0 (Version None)
Quarter: 2010Q1

REPORT INFORMATION
  Report Type: 
  Country: None (occurrence: None)
  Receive Date: 20100329
  Receipt Date: 20091015
  Transmission Date: 20100710
  Serious: Yes (Other)
  Sender: FDA-Public Use
  Company Number: 2009241204

PATIENT
  Age: 60 Year
  Sex: Female
  Weight: 68 kg

DRUGS (3)
  1. GEODON [Suspect]
     Indication: BIPOLAR DISORDER
     Dosage: 20 MG
  2. PROVIGIL [Concomitant]
  3. ABILIFY [Concomitant]

REACTIONS (3)
  - DEPRESSION [None]
  - DYSKINESIA [None]
  - TREMOR [None]
